FAERS Safety Report 18125586 (Version 5)
Quarter: 2025Q3

REPORT INFORMATION
  Report Type: Spontaneous
  Country: CA (occurrence: CA)
  Receive Date: 20200808
  Receipt Date: 20250809
  Transmission Date: 20251021
  Serious: Yes (Hospitalization)
  Sender: ALEXION PHARMACEUTICALS
  Company Number: 2020SE99472

PATIENT
  Sex: Male

DRUGS (41)
  1. SYMBICORT [Suspect]
     Active Substance: BUDESONIDE\FORMOTEROL FUMARATE DIHYDRATE
     Indication: Product used for unknown indication
  2. SYMBICORT [Suspect]
     Active Substance: BUDESONIDE\FORMOTEROL FUMARATE DIHYDRATE
     Indication: Asthma
  3. SYMBICORT [Suspect]
     Active Substance: BUDESONIDE\FORMOTEROL FUMARATE DIHYDRATE
  4. BUDESONIDE\FORMOTEROL [Suspect]
     Active Substance: BUDESONIDE\FORMOTEROL
  5. CANDESARTAN CILEXETIL [Suspect]
     Active Substance: CANDESARTAN CILEXETIL
  6. CANDESARTAN CILEXETIL [Suspect]
     Active Substance: CANDESARTAN CILEXETIL
  7. CANDESARTAN CILEXETIL [Suspect]
     Active Substance: CANDESARTAN CILEXETIL
  8. CYCLOBENZAPRINE [Suspect]
     Active Substance: CYCLOBENZAPRINE
     Indication: Product used for unknown indication
     Route: 065
  9. CYCLOBENZAPRINE [Suspect]
     Active Substance: CYCLOBENZAPRINE
     Route: 065
  10. CYCLOBENZAPRINE [Suspect]
     Active Substance: CYCLOBENZAPRINE
     Route: 065
  11. IMURAN [Suspect]
     Active Substance: AZATHIOPRINE
     Indication: Crohn^s disease
     Dosage: 50 MG, 1 DOSE DAILY
     Dates: start: 201806
  12. IMURAN [Suspect]
     Active Substance: AZATHIOPRINE
     Indication: Product used for unknown indication
     Dosage: 50 UNK, QD
  13. IMURAN [Suspect]
     Active Substance: AZATHIOPRINE
     Dosage: 50 UNK, QD
  14. IMURAN [Suspect]
     Active Substance: AZATHIOPRINE
     Route: 065
  15. IMURAN [Suspect]
     Active Substance: AZATHIOPRINE
     Route: 065
  16. IMURAN [Suspect]
     Active Substance: AZATHIOPRINE
     Route: 065
  17. NAPROSYN [Suspect]
     Active Substance: NAPROXEN
     Indication: Product used for unknown indication
     Route: 065
  18. NAPROSYN [Suspect]
     Active Substance: NAPROXEN
     Route: 065
  19. NAPROSYN [Suspect]
     Active Substance: NAPROXEN
     Route: 065
  20. ALBUTEROL [Suspect]
     Active Substance: ALBUTEROL
     Indication: Product used for unknown indication
     Route: 065
  21. ALBUTEROL [Suspect]
     Active Substance: ALBUTEROL
     Route: 065
  22. ALBUTEROL [Suspect]
     Active Substance: ALBUTEROL
     Route: 065
  23. PREDNISONE [Suspect]
     Active Substance: PREDNISONE
     Indication: Product used for unknown indication
     Route: 065
  24. PREDNISONE [Suspect]
     Active Substance: PREDNISONE
     Route: 065
  25. PREDNISONE [Suspect]
     Active Substance: PREDNISONE
     Route: 065
  26. SILDENAFIL CITRATE [Suspect]
     Active Substance: SILDENAFIL CITRATE
     Indication: Product used for unknown indication
     Route: 065
  27. SILDENAFIL CITRATE [Suspect]
     Active Substance: SILDENAFIL CITRATE
     Route: 065
  28. SILDENAFIL CITRATE [Suspect]
     Active Substance: SILDENAFIL CITRATE
     Route: 065
  29. TAZOBACTAM [Suspect]
     Active Substance: TAZOBACTAM
     Indication: Product used for unknown indication
  30. TAZOBACTAM [Suspect]
     Active Substance: TAZOBACTAM
  31. TAZOBACTAM [Suspect]
     Active Substance: TAZOBACTAM
  32. TYLENOL [Suspect]
     Active Substance: ACETAMINOPHEN
     Indication: Product used for unknown indication
     Route: 065
  33. TYLENOL [Suspect]
     Active Substance: ACETAMINOPHEN
     Route: 065
  34. TYLENOL [Suspect]
     Active Substance: ACETAMINOPHEN
     Route: 065
  35. VALSARTAN [Suspect]
     Active Substance: VALSARTAN
     Indication: Product used for unknown indication
     Route: 065
  36. VALSARTAN [Suspect]
     Active Substance: VALSARTAN
     Route: 065
  37. VALSARTAN [Suspect]
     Active Substance: VALSARTAN
     Route: 065
  38. VENTOLIN [Suspect]
     Active Substance: ALBUTEROL SULFATE
     Indication: Product used for unknown indication
     Route: 065
  39. VENTOLIN [Suspect]
     Active Substance: ALBUTEROL SULFATE
     Indication: Hypertension
     Route: 065
  40. VENTOLIN [Suspect]
     Active Substance: ALBUTEROL SULFATE
     Route: 065
  41. ACETAMINOPHEN [Suspect]
     Active Substance: ACETAMINOPHEN
     Indication: Product used for unknown indication
     Route: 065

REACTIONS (5)
  - Chills [Unknown]
  - Lymphocyte count abnormal [Unknown]
  - Neutrophil count increased [Unknown]
  - Platelet count decreased [Unknown]
  - Pyrexia [Unknown]

NARRATIVE: CASE EVENT DATE: 20180601
